FAERS Safety Report 7044089-2 (Version None)
Quarter: 2010Q4

REPORT INFORMATION
  Report Type: 
  Country: None (occurrence: None)
  Receive Date: 20101013
  Receipt Date: 20101005
  Transmission Date: 20110411
  Serious: Yes (Other)
  Sender: FDA-Public Use
  Company Number: US-PFIZER INC-2010126503

PATIENT
  Sex: Female
  Weight: 120 kg

DRUGS (6)
  1. CHANTIX [Suspect]
     Indication: SMOKING CESSATION THERAPY
     Dosage: 0.5 MG, 1X/DAY
     Dates: start: 20100101
  2. CHANTIX [Suspect]
     Dosage: 1 MG, 2X/DAY
     Route: 048
     Dates: start: 20100101, end: 20100501
  3. INSULIN [Concomitant]
     Indication: DIABETES MELLITUS
     Dosage: 75 IU, 3X/DAY
     Dates: start: 20090101
  4. ULTRACET [Concomitant]
     Indication: BACK INJURY
     Dosage: 37.5/325
     Route: 048
  5. FLEXERIL [Concomitant]
     Indication: BACK INJURY
     Dosage: 10 MG, 3X/DAY
     Route: 048
     Dates: start: 20100101
  6. SOMA [Concomitant]
     Dosage: UNK
     Route: 048

REACTIONS (2)
  - BLOOD GLUCOSE INCREASED [None]
  - BLOOD PRESSURE INCREASED [None]
